FAERS Safety Report 7437529-8 (Version None)
Quarter: 2011Q2

REPORT INFORMATION
  Report Type: 
  Country: None (occurrence: None)
  Receive Date: 20110426
  Receipt Date: 20110420
  Transmission Date: 20111010
  Serious: Yes (Other)
  Sender: FDA-Public Use
  Company Number: US-PFIZER INC-2011087064

PATIENT
  Sex: Male

DRUGS (4)
  1. ZOLOFT [Suspect]
     Dosage: 50 MG, DAILY
     Dates: start: 20100201
  2. CHANTIX [Suspect]
     Dosage: UNK
     Dates: start: 20090901
  3. CHANTIX [Suspect]
     Dosage: UNK
     Dates: start: 20110301
  4. CHANTIX [Suspect]
     Dosage: UNK
     Dates: start: 20080101

REACTIONS (2)
  - SHOULDER OPERATION [None]
  - ABNORMAL BEHAVIOUR [None]
